FAERS Safety Report 9720615 (Version 2)
Quarter: 2013Q4

REPORT INFORMATION
  Report Type: Report from Study
  Country: US (occurrence: US)
  Receive Date: 20131129
  Receipt Date: 20131129
  Transmission Date: 20140711
  Serious: No
  Sender: FDA-Public Use
  Company Number: PHEH2013US000722

PATIENT
  Age: 76 Year
  Sex: Female

DRUGS (4)
  1. TASIGNA [Suspect]
     Indication: CHRONIC MYELOID LEUKAEMIA
     Dosage: 150 MG, BID
     Route: 048
     Dates: start: 20100823
  2. KLOR CON [Concomitant]
     Indication: HYPOKALAEMIA
     Dosage: 20 UG, TID
     Dates: start: 20110812
  3. LEVOTHYROXINE [Concomitant]
     Indication: HYPOTHYROIDISM
     Dosage: 112 UG, TID
  4. PANTOPRAZOLE [Concomitant]
     Dosage: 40 MG, BID

REACTIONS (1)
  - Rash [Not Recovered/Not Resolved]
